FAERS Safety Report 5800632-X (Version None)
Quarter: 2008Q3

REPORT INFORMATION
  Report Type: 
  Country: None (occurrence: None)
  Receive Date: 20080703
  Receipt Date: 20080626
  Transmission Date: 20090109
  Serious: Yes (Death, Other)
  Sender: FDA-Public Use
  Company Number: US-BAXTER-2008BH006852

PATIENT
  Sex: Female

DRUGS (1)
  1. HEPARIN SODIUM INJECTION [Suspect]
     Indication: COAGULOPATHY
     Dosage: DOSE UNIT:UNKNOWN
     Route: 065
     Dates: start: 20071101, end: 20071201

REACTIONS (6)
  - BACTERAEMIA [None]
  - DYSPNOEA [None]
  - HEPARIN-INDUCED THROMBOCYTOPENIA [None]
  - NAUSEA [None]
  - RENAL FAILURE [None]
  - UNRESPONSIVE TO STIMULI [None]
